FAERS Safety Report 8416575 (Version 2)
Quarter: 2012Q4

REPORT INFORMATION
  Report Type: 
  Country: JP (occurrence: JP)
  Receive Date: 20120220
  Receipt Date: 20121003
  Transmission Date: 20130627
  Serious: Yes (Hospitalization)
  Sender: FDA-Public Use
  Company Number: JP-ELI_LILLY_AND_COMPANY-JP201109007298

PATIENT
  Age: 75 Year
  Sex: Female

DRUGS (2)
  1. FORTEO [Suspect]
     Dosage: UNK
     Route: 058
     Dates: start: 201205
  2. FORTEO [Suspect]
     Dosage: UNK
     Route: 058

REACTIONS (6)
  - Fall [Unknown]
  - Hand fracture [Unknown]
  - Decreased appetite [Recovered/Resolved]
  - Weight decreased [Unknown]
  - Pain in extremity [Recovering/Resolving]
  - Weight decreased [Not Recovered/Not Resolved]
